FAERS Safety Report 23422769 (Version 1)
Quarter: 2024Q1

REPORT INFORMATION
  Report Type: Other
  Country: IT (occurrence: IT)
  Receive Date: 20240119
  Receipt Date: 20240119
  Transmission Date: 20240410
  Serious: Yes (Hospitalization)
  Sender: FDA-Public Use
  Company Number: IT-PIERREL S.P.A.-2024PIR00010

PATIENT
  Age: 67 Year
  Sex: Female

DRUGS (2)
  1. ARTICAINE [Suspect]
     Active Substance: ARTICAINE
     Indication: Dental care
     Dosage: ARTICAINE 2 VIALS 40 MG/ML
     Dates: start: 20231116, end: 20231116
  2. AUGMENTIN [Suspect]
     Active Substance: AMOXICILLIN\CLAVULANATE POTASSIUM
     Indication: Dental care
     Dosage: 2.2 G
     Dates: start: 20231116, end: 20231116

REACTIONS (1)
  - Anaphylactic shock [Recovered/Resolved]

NARRATIVE: CASE EVENT DATE: 20231116
